FAERS Safety Report 6505435-9 (Version None)
Quarter: 2009Q4

REPORT INFORMATION
  Report Type: 
  Country: None (occurrence: None)
  Receive Date: 20091217
  Receipt Date: 20091217
  Transmission Date: 20100525
  Serious: Yes (Hospitalization)
  Sender: FDA-Public Use
  Company Number: None

PATIENT
  Sex: Male
  Weight: 103 kg

DRUGS (14)
  1. POMALIDOMIDE (CC-4047)--HELD SINCE 4/13 [Suspect]
     Dosage: 3 MG ONCE DAILY ORAL ONCE DAILY 2MG (HELD) ONCE DAILY ORAL
     Route: 048
     Dates: start: 20090209, end: 20090216
  2. POMALIDOMIDE (CC-4047)--HELD SINCE 4/13 [Suspect]
     Dosage: 3 MG ONCE DAILY ORAL ONCE DAILY 2MG (HELD) ONCE DAILY ORAL
     Route: 048
     Dates: start: 20090302, end: 20090413
  3. PREDNISONE [Concomitant]
  4. TACROLIMUS [Concomitant]
  5. BACTRIM [Concomitant]
  6. VALTREX [Concomitant]
  7. FLUCONAZOLE [Concomitant]
  8. PROVIGIL [Concomitant]
  9. CYMBALTA [Concomitant]
  10. VICODIN [Concomitant]
  11. FLEXERIL [Concomitant]
  12. TESTOSTERONE [Concomitant]
  13. PRILOSEC [Concomitant]
  14. RESTASIS [Concomitant]

REACTIONS (7)
  - ABDOMINAL PAIN UPPER [None]
  - CONSTIPATION [None]
  - FATIGUE [None]
  - INFECTION [None]
  - MUSCLE SPASMS [None]
  - NAUSEA [None]
  - TREMOR [None]
